FAERS Safety Report 20481455 (Version 2)
Quarter: 2022Q1

REPORT INFORMATION
  Report Type: Report from Study
  Country: CO (occurrence: CO)
  Receive Date: 20220216
  Receipt Date: 20220309
  Transmission Date: 20220424
  Serious: No
  Sender: FDA-Public Use
  Company Number: CO-TAKEDA-2022TUS009840

PATIENT
  Sex: Female
  Weight: 45 kg

DRUGS (1)
  1. BRENTUXIMAB VEDOTIN [Suspect]
     Active Substance: BRENTUXIMAB VEDOTIN
     Indication: Cutaneous T-cell lymphoma
     Dosage: 85 MILLIGRAM, Q4WEEKS
     Route: 042
     Dates: start: 20220105

REACTIONS (2)
  - Weight decreased [Unknown]
  - Off label use [Unknown]
